FAERS Safety Report 5941919-X (Version None)
Quarter: 2008Q4

REPORT INFORMATION
  Report Type: 
  Country: None (occurrence: None)
  Receive Date: 20081105
  Receipt Date: 20081031
  Transmission Date: 20090506
  Serious: Yes (Other)
  Sender: FDA-Public Use
  Company Number: JP-ASTRAZENECA-2008AP08548

PATIENT
  Age: 80 Year
  Sex: Male
  Weight: 50 kg

DRUGS (2)
  1. DIPRIVAN [Suspect]
     Indication: SEDATION
     Dosage: ADMINISTERED AT 8 CC/H.
     Route: 042
     Dates: start: 20081002, end: 20081020
  2. ESLAX [Concomitant]
     Dosage: ADMINISTERED AT 2 CC/H.
     Route: 042
     Dates: start: 20081002, end: 20081020

REACTIONS (1)
  - DELAYED RECOVERY FROM ANAESTHESIA [None]
